FAERS Safety Report 18667411 (Version 1)
Quarter: 2020Q4

REPORT INFORMATION
  Report Type: Spontaneous
  Country: US (occurrence: US)
  Receive Date: 20201228
  Receipt Date: 20201228
  Transmission Date: 20210114
  Serious: Yes (Other)
  Sender: FDA-Public Use
  Company Number: US-SA-2020SA367866

PATIENT

DRUGS (2)
  1. LEMTRADA [Suspect]
     Active Substance: ALEMTUZUMAB
     Dosage: 12 MG, QD
     Route: 041
  2. LEMTRADA [Suspect]
     Active Substance: ALEMTUZUMAB
     Dosage: 12 MG, QD
     Route: 041

REACTIONS (5)
  - Blood thyroid stimulating hormone decreased [Unknown]
  - Thyroxine increased [Unknown]
  - Myocarditis [Unknown]
  - Heart rate increased [Unknown]
  - Hyperthyroidism [Unknown]
